FAERS Safety Report 18654391 (Version 1)
Quarter: 2020Q4

REPORT INFORMATION
  Report Type: Spontaneous
  Country: US (occurrence: US)
  Receive Date: 20201223
  Receipt Date: 20201223
  Transmission Date: 20210114
  Serious: No
  Sender: FDA-Public Use
  Company Number: None

PATIENT
  Age: 39 Year
  Sex: Female
  Weight: 78.3 kg

DRUGS (7)
  1. ESTRADIOL. [Suspect]
     Active Substance: ESTRADIOL
     Indication: MENOPAUSAL SYMPTOMS
     Dosage: ?          OTHER FREQUENCY:WEEKLY;?
     Route: 062
     Dates: start: 20140328, end: 20150311
  2. ESTRADIOL. [Suspect]
     Active Substance: ESTRADIOL
     Route: 048
     Dates: start: 20150311, end: 20160701
  3. ESTRADIOL 0.1MG/24HR TRANSDERMAL PATCH [Concomitant]
     Dates: start: 20140328, end: 20150311
  4. MINIVELLE 0.075MG/24HR PATCH [Concomitant]
     Dates: start: 20130312, end: 20140328
  5. VIVELLE- DOT 0.05MG/24HR PATCH [Concomitant]
     Dates: start: 20120629, end: 20120817
  6. ESTRADIOL TABLET 2MG [Concomitant]
     Dates: start: 20150311, end: 20160701
  7. VIVELLE-DOT 0.075MG/24HR PATCH [Concomitant]
     Dates: start: 20120817, end: 20130312

REACTIONS (1)
  - Drug ineffective [None]

NARRATIVE: CASE EVENT DATE: 20150311
